FAERS Safety Report 5094470-6 (Version None)
Quarter: 2006Q3

REPORT INFORMATION
  Report Type: 
  Country: None (occurrence: None)
  Receive Date: 20060831
  Receipt Date: 20060822
  Transmission Date: 20061208
  Serious: Yes (Hospitalization, Other)
  Sender: FDA-Public Use
  Company Number: US-ABBOTT-06P-163-0341373-00

PATIENT
  Age: 57 Year
  Sex: Female
  Weight: 87 kg

DRUGS (4)
  1. REMIFENTANIL [Suspect]
     Indication: SEDATION
     Dosage: NOT REPORTED
     Route: 042
  2. REMIFENTANIL [Suspect]
     Indication: ANALGESIC EFFECT
     Dosage: INFUSION RATE INCREASED
  3. REMIFENTANIL [Suspect]
     Dosage: NOT REPORTED
     Route: 040
  4. BUPIVACAINE [Concomitant]
     Indication: SPINAL ANAESTHESIA
     Dosage: ISOBARIC

REACTIONS (6)
  - APNOEA [None]
  - BRADYCARDIA [None]
  - HYPERGLYCAEMIA [None]
  - HYPOTENSION [None]
  - HYPOXIC ENCEPHALOPATHY [None]
  - LOSS OF CONSCIOUSNESS [None]
